FAERS Safety Report 6552330-5 (Version None)
Quarter: 2010Q1

REPORT INFORMATION
  Report Type: 
  Country: None (occurrence: None)
  Receive Date: 20100126
  Receipt Date: 20100115
  Transmission Date: 20100710
  Serious: Yes (Death, Life-Threatening)
  Sender: FDA-Public Use
  Company Number: FR-KINGPHARMUSA00001-K201000055

PATIENT
  Age: 61 Year
  Sex: Male

DRUGS (26)
  1. ALTACE [Suspect]
     Dosage: 2.5 MG, QD
     Route: 048
     Dates: start: 20091021, end: 20091024
  2. ARTERENOL [Suspect]
     Dosage: UNK
     Dates: start: 20091025
  3. ARTERENOL [Suspect]
     Dosage: UNK
     Dates: start: 20091028
  4. ACETYLSALICYLIC ACID [Suspect]
     Dosage: 100 MG, QD
     Route: 048
     Dates: start: 20091020, end: 20091028
  5. FUROSEMIDE [Suspect]
     Dosage: 20 MG, QD
     Route: 042
     Dates: start: 20091028
  6. SIMVASTATIN [Suspect]
     Dosage: 20 MG, QD
     Route: 048
     Dates: start: 20091025, end: 20091027
  7. ZOPICLON [Suspect]
     Dosage: 7.5 MG, QD
     Route: 048
     Dates: start: 20091020, end: 20091026
  8. AGOPTON [Suspect]
     Dosage: 15 MG, QD
     Route: 048
     Dates: start: 20091020, end: 20091028
  9. FINLEPSIN [Suspect]
     Dosage: 200 MG, QD
     Route: 048
     Dates: start: 20091020, end: 20091028
  10. BELOC ZOK [Suspect]
     Dosage: UNK
     Route: 048
     Dates: start: 20091020, end: 20091024
  11. TAVOR [Suspect]
     Dosage: 1 MG, QD
     Route: 048
     Dates: start: 20091027
  12. TAVOR [Suspect]
     Dosage: 1 MG, BID
     Route: 048
     Dates: start: 20091020, end: 20091026
  13. MELPERONE HYDROCHLORIDE [Suspect]
     Dosage: UNK
     Dates: start: 20091020, end: 20091027
  14. CLONIDINE HYDROCHLORIDE [Suspect]
     Dosage: .075 MG, BID
     Route: 048
     Dates: start: 20091020, end: 20091024
  15. TORASEMIDE [Suspect]
     Dosage: 10 MG, TID
     Route: 048
     Dates: start: 20091027
  16. TORASEMIDE [Suspect]
     Dosage: 10 MG, UNK
     Route: 048
     Dates: start: 20091023, end: 20091026
  17. TORASEMIDE [Suspect]
     Dosage: 10 MG, BID
     Route: 048
     Dates: start: 20091021, end: 20091022
  18. TORASEMIDE [Suspect]
     Dosage: 10 MG, TID
     Route: 048
     Dates: start: 20091020, end: 20091020
  19. ARIXTRA [Suspect]
     Dosage: 2.5 MG, QD
     Route: 058
     Dates: start: 20091020, end: 20091028
  20. SULBACTAM [Suspect]
     Dosage: 1 G, Q8H
     Route: 042
     Dates: start: 20091025, end: 20091027
  21. FLUNITRAZEPAM [Suspect]
     Dosage: 1 MG, QD
     Dates: start: 20091028
  22. ZIENAM [Suspect]
     Dosage: 1 G, Q8H
     Dates: start: 20091028
  23. BERLINSULIN H [Concomitant]
     Dosage: UNK
     Dates: start: 20091020, end: 20091028
  24. BERLINSULIN [Concomitant]
     Dosage: UNK
     Dates: start: 20091020, end: 20091021
  25. ACETYLCYSTEINE [Concomitant]
     Dosage: UNK
     Dates: start: 20091020, end: 20091028
  26. KALINOR-BRAUSETABLETTEN [Concomitant]
     Dosage: UNK
     Dates: start: 20091021

REACTIONS (5)
  - CARDIOVASCULAR INSUFFICIENCY [None]
  - RENAL FAILURE ACUTE [None]
  - RHABDOMYOLYSIS [None]
  - SEPSIS [None]
  - URINE COLOUR ABNORMAL [None]
